FAERS Safety Report 6916708-X (Version None)
Quarter: 2010Q3

REPORT INFORMATION
  Report Type: 
  Country: None (occurrence: None)
  Receive Date: 20100810
  Receipt Date: 20100730
  Transmission Date: 20110219
  Serious: Yes (Other)
  Sender: FDA-Public Use
  Company Number: US-WYE-H15858210

PATIENT
  Sex: Female
  Weight: 68.1 kg

DRUGS (8)
  1. EFFEXOR [Suspect]
     Indication: DEPRESSION
     Dosage: 75 MG UNSPECIFIED FREQUENCY
     Route: 048
     Dates: start: 20020101
  2. EFFEXOR [Suspect]
     Route: 048
     Dates: end: 20100101
  3. EFFEXOR [Suspect]
     Dosage: 187.5 MG UNSPECIFIED FREQUENCY
     Route: 048
     Dates: start: 20100101, end: 20100617
  4. PROTONIX [Concomitant]
     Dosage: UNKNOWN
  5. DIOVAN [Concomitant]
     Indication: HYPERTENSION
     Dosage: UNKNOWN
  6. PRAVASTATIN [Concomitant]
     Indication: BLOOD CHOLESTEROL INCREASED
     Dosage: UNKNOWN
  7. LORAZEPAM [Concomitant]
     Indication: ANXIETY
     Dosage: 1 MG BID OR TID
     Route: 048
  8. RANITIDINE [Concomitant]
     Indication: ULCER
     Dosage: UNKNOWN

REACTIONS (8)
  - CONDITION AGGRAVATED [None]
  - DEPRESSION [None]
  - DRUG EFFECT DECREASED [None]
  - DRUG WITHDRAWAL SYNDROME [None]
  - PAIN [None]
  - SUICIDAL IDEATION [None]
  - TREMOR [None]
  - UNEVALUABLE EVENT [None]
